FAERS Safety Report 8134394-0 (Version None)
Quarter: 2012Q1

REPORT INFORMATION
  Report Type: 
  Country: None (occurrence: None)
  Receive Date: 20120209
  Receipt Date: 20120125
  Transmission Date: 20120608
  Serious: Yes (Hospitalization)
  Sender: FDA-Public Use
  Company Number: 2011HGS-002727

PATIENT
  Age: 30 Year
  Sex: Female
  Weight: 90.7194 kg

DRUGS (9)
  1. KEFLEX(CEFALEXIN)(CEFALEXIN) [Concomitant]
  2. PLAQUENIL(HYDROXYCHLOROQUINE SULFATE)(HYDROXYCHLOROQUINE SULFATE) [Concomitant]
  3. BENLYSTA [Suspect]
     Indication: SYSTEMIC LUPUS ERYTHEMATOSUS
     Dosage: 920 MG, 1 IN 28 D, INTRAVENOUS
     Route: 042
     Dates: start: 20111013
  4. MYCOPHENOLATE (MYCOPHENOLATE MOFETIL)(MYCOPHENOLATE MOFETIL) [Concomitant]
  5. ACYCLOVIR(ACICLOVIR)(ACICLOVIR) [Concomitant]
  6. PREDNISONE [Concomitant]
  7. CELEXA(CITALOPRAM CELEXA(CITALOPRAM HYDROBROMIDE)(CITALOPRAM HYDROBROM [Concomitant]
  8. TYLENOL(PARACETAMOL)(PARACETAMOL) [Concomitant]
  9. IRON(IRON)(IRON) [Concomitant]

REACTIONS (3)
  - MYOSITIS [None]
  - DRUG INEFFECTIVE [None]
  - HISTOPLASMOSIS [None]
